FAERS Safety Report 15850070 (Version 5)
Quarter: 2019Q1

REPORT INFORMATION
  Report Type: Spontaneous
  Country: US (occurrence: US)
  Receive Date: 20190121
  Receipt Date: 20190306
  Transmission Date: 20190417
  Serious: No
  Sender: FDA-Public Use
  Company Number: US-SA-2019SA012696

PATIENT
  Age: 64 Year
  Sex: Female

DRUGS (1)
  1. LANTUS [Suspect]
     Active Substance: INSULIN GLARGINE
     Indication: TYPE 2 DIABETES MELLITUS
     Dosage: 25 U, HS
     Dates: start: 2008

REACTIONS (9)
  - Nasal congestion [Not Recovered/Not Resolved]
  - Visual impairment [Unknown]
  - Head discomfort [Not Recovered/Not Resolved]
  - Blood glucose increased [Unknown]
  - Throat irritation [Not Recovered/Not Resolved]
  - Ear congestion [Not Recovered/Not Resolved]
  - Malaise [Unknown]
  - Incorrect dose administered by device [Unknown]
  - Device operational issue [Unknown]

NARRATIVE: CASE EVENT DATE: 20181225
